FAERS Safety Report 11382585 (Version 1)
Quarter: 2015Q3

REPORT INFORMATION
  Report Type: Spontaneous
  Country: US (occurrence: US)
  Receive Date: 20150811
  Receipt Date: 20150811
  Transmission Date: 20151125
  Serious: No
  Sender: FDA-Public Use
  Company Number: US-ELI_LILLY_AND_COMPANY-US200903002522

PATIENT
  Sex: Male

DRUGS (4)
  1. CIALIS [Suspect]
     Active Substance: TADALAFIL
     Dosage: 20 MG, AS NEEDED
     Route: 065
  2. ADVAIR HFA [Concomitant]
     Active Substance: FLUTICASONE PROPIONATE\SALMETEROL XINAFOATE
     Indication: ASTHMA
  3. SPIRIVA [Concomitant]
     Active Substance: TIOTROPIUM BROMIDE MONOHYDRATE
     Indication: ASTHMA
  4. MICARDIS [Concomitant]
     Active Substance: TELMISARTAN
     Indication: BLOOD PRESSURE INCREASED

REACTIONS (2)
  - Drug ineffective [Unknown]
  - Drug effect incomplete [Unknown]
